FAERS Safety Report 19075887 (Version 4)
Quarter: 2021Q2

REPORT INFORMATION
  Report Type: Report from Study
  Country: US (occurrence: US)
  Receive Date: 20210330
  Receipt Date: 20210618
  Transmission Date: 20210717
  Serious: Yes (Hospitalization, Other)
  Sender: FDA-Public Use
  Company Number: US-GILEAD-2021-0522461

PATIENT
  Age: 71 Year
  Sex: Male

DRUGS (40)
  1. BUDESONIDE. [Concomitant]
     Active Substance: BUDESONIDE
  2. SELENIUM [Concomitant]
     Active Substance: SELENIUM
  3. AZTREONAM LYSINE [Suspect]
     Active Substance: AZTREONAM LYSINE
     Indication: ASTHMA
     Dosage: 75 MG (1 VIAL), TID, 28 DAYS ON AND 28 DAYS OFF
     Route: 055
  4. ALBUTEROL HFA [Concomitant]
     Active Substance: ALBUTEROL SULFATE
  5. VITAMIN B12 [Concomitant]
     Active Substance: CYANOCOBALAMIN
  6. GARLIC [ALLIUM SATIVUM] [Concomitant]
     Active Substance: GARLIC
  7. BACLOFEN. [Concomitant]
     Active Substance: BACLOFEN
  8. VIAGRA [Concomitant]
     Active Substance: SILDENAFIL CITRATE
  9. GABAPENTIN. [Concomitant]
     Active Substance: GABAPENTIN
  10. FINASTERIDE. [Concomitant]
     Active Substance: FINASTERIDE
  11. AZTREONAM LYSINE [Suspect]
     Active Substance: AZTREONAM LYSINE
     Indication: BRONCHIECTASIS
  12. IPRATROPIUM BROMIDE. [Concomitant]
     Active Substance: IPRATROPIUM BROMIDE
  13. SPIRIVA [Concomitant]
     Active Substance: TIOTROPIUM BROMIDE MONOHYDRATE
  14. TAMSULOSIN HCL [Concomitant]
     Active Substance: TAMSULOSIN HYDROCHLORIDE
  15. MONTELUKAST SODIUM. [Concomitant]
     Active Substance: MONTELUKAST SODIUM
  16. TYLENOL [Concomitant]
     Active Substance: ACETAMINOPHEN
  17. VITAMIN C [Concomitant]
     Active Substance: ASCORBIC ACID
  18. PROAIR HFA [Concomitant]
     Active Substance: ALBUTEROL SULFATE
  19. GRAPE SEED [VITIS VINIFERA] [Concomitant]
     Active Substance: HERBALS\VITIS VINIFERA SEED
  20. SAW PALMETTO EXTRACT [Concomitant]
  21. CHONDROITIN SULFATE [Concomitant]
     Active Substance: CHONDROITIN SULFATE (BOVINE)
  22. GREEN TEA EXTRACT [CAMELLIA SINENSIS] [Concomitant]
  23. MUCINEX [Concomitant]
     Active Substance: GUAIFENESIN
  24. HYPERSAL [Concomitant]
     Active Substance: SODIUM CHLORIDE
  25. ADVAIR HFA [Concomitant]
     Active Substance: FLUTICASONE PROPIONATE\SALMETEROL XINAFOATE
  26. ASPIRIN [ACETYLSALICYLIC ACID] [Concomitant]
     Active Substance: ASPIRIN
  27. VITAMIN D2 [Concomitant]
     Active Substance: ERGOCALCIFEROL
  28. BIOTIN [Concomitant]
     Active Substance: BIOTIN
  29. GINGER ROOT EXTRACT [Concomitant]
  30. GLUCOSAMINE [Concomitant]
     Active Substance: GLUCOSAMINE
  31. MAGNESIUM [Concomitant]
     Active Substance: MAGNESIUM
  32. VITAMIN D3 [Concomitant]
     Active Substance: CHOLECALCIFEROL
  33. TOBRAMYCIN. [Concomitant]
     Active Substance: TOBRAMYCIN
  34. IPRATROPIUM/ALBUTEROL [Concomitant]
     Active Substance: ALBUTEROL\IPRATROPIUM
  35. FLONASE ALLERGY RELIEF [Concomitant]
     Active Substance: FLUTICASONE PROPIONATE
  36. TEMAZEPAM. [Concomitant]
     Active Substance: TEMAZEPAM
  37. B?COMPLEX 2000 [Concomitant]
  38. ZINC. [Concomitant]
     Active Substance: ZINC
  39. SIMVASTATIN. [Concomitant]
     Active Substance: SIMVASTATIN
  40. TURMERIC CURCUMIN [CURCUMA LONGA] [Concomitant]

REACTIONS (6)
  - Endocarditis bacterial [Recovered/Resolved]
  - Off label use [Not Recovered/Not Resolved]
  - Wheezing [Not Recovered/Not Resolved]
  - Cardiac infection [Not Recovered/Not Resolved]
  - Dyspnoea [Not Recovered/Not Resolved]
  - Cataract [Recovered/Resolved]

NARRATIVE: CASE EVENT DATE: 202104
